FAERS Safety Report 19674573 (Version 1)
Quarter: 2021Q3

REPORT INFORMATION
  Report Type: Report from Study
  Country: HU (occurrence: HU)
  Receive Date: 20210809
  Receipt Date: 20210809
  Transmission Date: 20211014
  Serious: Yes (Hospitalization)
  Sender: FDA-Public Use
  Company Number: HU-NOVOPROD-789021

PATIENT
  Age: 71 Year
  Sex: Female
  Weight: 89 kg

DRUGS (2)
  1. SEMAGLUTIDE B 3.0 MG/ML PDS290 [Suspect]
     Active Substance: SEMAGLUTIDE
     Dosage: 0.24 MG, QW
     Dates: start: 20210609
  2. SEMAGLUTIDE B 3.0 MG/ML PDS290 [Suspect]
     Active Substance: SEMAGLUTIDE
     Indication: OBESITY
     Dosage: 2.4 MG, QW
     Route: 058
     Dates: start: 20191216, end: 20210201

REACTIONS (2)
  - Cholelithiasis [Recovered/Resolved]
  - Bile duct stone [Recovered/Resolved]

NARRATIVE: CASE EVENT DATE: 20210203
